FAERS Safety Report 9045669 (Version 1)
Quarter: 2013Q1

REPORT INFORMATION
  Report Type: Spontaneous
  Country: US (occurrence: US)
  Receive Date: 20130131
  Receipt Date: 20130131
  Transmission Date: 20140127
  Serious: No
  Sender: FDA-Public Use
  Company Number: US-ABBOTT-12P-163-1015811-00

PATIENT
  Sex: Female
  Weight: 83.99 kg

DRUGS (17)
  1. HUMIRA [Suspect]
     Indication: SCLERITIS
     Dates: start: 201211
  2. CELLCEPT [Concomitant]
     Indication: SCLERITIS
  3. EYE DROPS [Concomitant]
     Indication: GLAUCOMA
  4. ATENOLOL [Concomitant]
     Indication: HYPERTENSION
  5. PRAVASTATIN [Concomitant]
     Indication: BLOOD CHOLESTEROL INCREASED
  6. ZOLPIDEM [Concomitant]
     Indication: INSOMNIA
  7. PERCOCET [Concomitant]
     Indication: EYE PAIN
  8. ESTRADIOL [Concomitant]
     Indication: HORMONE REPLACEMENT THERAPY
  9. SUMATRIPTAN [Concomitant]
     Indication: MIGRAINE
  10. BENTYL [Concomitant]
     Indication: ABDOMINAL PAIN
  11. VICODIN [Concomitant]
     Indication: BACK PAIN
  12. XANAFLEX [Concomitant]
     Indication: MUSCLE SPASMS
  13. GABAPENTIN [Concomitant]
     Indication: FIBROMYALGIA
  14. FOLIC ACID [Concomitant]
     Indication: PRODUCT USED FOR UNKNOWN INDICATION
  15. TRAVATAN Z [Concomitant]
     Indication: EYE DISORDER
     Route: 047
  16. DORZOLAMIDE [Concomitant]
     Indication: EYE DISORDER
     Route: 047
  17. ARTICIAL TEARS [Concomitant]
     Indication: DRY EYE

REACTIONS (6)
  - Off label use [Not Recovered/Not Resolved]
  - Local swelling [Not Recovered/Not Resolved]
  - Local swelling [Not Recovered/Not Resolved]
  - Therapeutic response unexpected [Not Recovered/Not Resolved]
  - Migraine [Not Recovered/Not Resolved]
  - Alopecia [Not Recovered/Not Resolved]
